FAERS Safety Report 7218862-1 (Version None)
Quarter: 2011Q1

REPORT INFORMATION
  Report Type: 
  Country: None (occurrence: None)
  Receive Date: 20110110
  Receipt Date: 20110107
  Transmission Date: 20110831
  Serious: Yes (Death, Hospitalization, Other)
  Sender: FDA-Public Use
  Company Number: US-AMGEN LTD.-QUU430628

PATIENT

DRUGS (2)
  1. NPLATE [Suspect]
     Indication: IDIOPATHIC THROMBOCYTOPENIC PURPURA
     Dosage: 2 A?G/KG, UNK
     Dates: start: 20090123, end: 20100622
  2. IMMUNOGLOBULIN HUMAN ANTI-RH [Concomitant]

REACTIONS (7)
  - HEADACHE [None]
  - ARTHRALGIA [None]
  - PLATELET COUNT DECREASED [None]
  - SYSTEMIC LUPUS ERYTHEMATOSUS [None]
  - ECCHYMOSIS [None]
  - COMPLETED SUICIDE [None]
  - OVERDOSE [None]
